FAERS Safety Report 21374657 (Version 1)
Quarter: 2022Q3

REPORT INFORMATION
  Report Type: Spontaneous
  Country: US (occurrence: US)
  Receive Date: 20220926
  Receipt Date: 20220926
  Transmission Date: 20221027
  Serious: No
  Sender: FDA-Public Use
  Company Number: US-ALLERGAN-2126433US

PATIENT

DRUGS (3)
  1. LEXAPRO [Suspect]
     Active Substance: ESCITALOPRAM OXALATE
     Indication: Exposure via breast milk
     Dosage: UNK
     Route: 063
     Dates: end: 20210331
  2. BENZYL BENZOATE [Suspect]
     Active Substance: BENZYL BENZOATE
     Indication: Exposure via breast milk
     Dosage: UNK
     Route: 063
     Dates: end: 20210331
  3. SEROQUEL [Suspect]
     Active Substance: QUETIAPINE FUMARATE
     Indication: Exposure via breast milk
     Dosage: UNK
     Route: 063
     Dates: end: 20210331

REACTIONS (1)
  - Exposure via breast milk [Unknown]
